FAERS Safety Report 5974819-X (Version None)
Quarter: 2008Q4

REPORT INFORMATION
  Report Type: 
  Country: None (occurrence: None)
  Receive Date: 20081201
  Receipt Date: 20081126
  Transmission Date: 20090506
  Serious: Yes (Other)
  Sender: FDA-Public Use
  Company Number: US-PFIZER INC-2008100576

PATIENT
  Sex: Male

DRUGS (1)
  1. CARDURA [Suspect]
     Dosage: DAILY DOSE:16MG

REACTIONS (1)
  - CATARACT OPERATION [None]
